FAERS Safety Report 23100821 (Version 1)
Quarter: 2023Q4

REPORT INFORMATION
  Report Type: Spontaneous
  Country: US (occurrence: None)
  Receive Date: 20231021
  Receipt Date: 20231021
  Transmission Date: 20240109
  Serious: Yes (Hospitalization)
  Sender: FDA-Public Use
  Company Number: None

PATIENT
  Sex: Male
  Weight: 92 kg

DRUGS (2)
  1. CISPLATIN [Suspect]
     Active Substance: CISPLATIN
  2. ETOPOSIDE [Concomitant]
     Active Substance: ETOPOSIDE

REACTIONS (5)
  - Lymphocyte count decreased [None]
  - Blood creatinine decreased [None]
  - Acute kidney injury [None]
  - Candida infection [None]
  - Odynophagia [None]

NARRATIVE: CASE EVENT DATE: 20231012
